FAERS Safety Report 6679079-2 (Version None)
Quarter: 2010Q2

REPORT INFORMATION
  Report Type: 
  Country: None (occurrence: None)
  Receive Date: 20100409
  Receipt Date: 20100327
  Transmission Date: 20101027
  Serious: Yes (Other)
  Sender: FDA-Public Use
  Company Number: 232955J09USA

PATIENT
  Age: 55 Year
  Sex: Female
  Weight: 65 kg

DRUGS (2)
  1. REBIF [Suspect]
     Indication: MULTIPLE SCLEROSIS
     Dosage: 44 MCG, 3 IN 1 WK, SUBCUTANEOUS
     Route: 058
     Dates: start: 20070620
  2. AMITRIPTYLINE HYDROCHLORIDE [Concomitant]

REACTIONS (4)
  - FIBROMYALGIA [None]
  - HYPOAESTHESIA [None]
  - OSTEOARTHRITIS [None]
  - PAIN IN EXTREMITY [None]
